FAERS Safety Report 4327842-5 (Version None)
Quarter: 2004Q1

REPORT INFORMATION
  Report Type: 
  Country: None (occurrence: None)
  Receive Date: 20040325
  Receipt Date: 20040308
  Transmission Date: 20041129
  Serious: Yes (Other)
  Sender: FDA-Public Use
  Company Number: FR-JNJFOC-20040301822

PATIENT
  Age: 85 Year
  Sex: Male

DRUGS (1)
  1. REMINYL [Suspect]
     Indication: MEMORY IMPAIRMENT
     Dosage: 4 MG, 2 IN 1 DAY, ORAL
     Route: 048
     Dates: start: 20040201

REACTIONS (1)
  - BIPOLAR DISORDER [None]
